FAERS Safety Report 9565641 (Version 2)
Quarter: 2013Q3

REPORT INFORMATION
  Report Type: Report from Study
  Country: US (occurrence: US)
  Receive Date: 20130930
  Receipt Date: 20130930
  Transmission Date: 20140515
  Serious: Yes (Other)
  Sender: FDA-Public Use
  Company Number: US-ABBVIE-11P-163-0839810-00

PATIENT
  Age: 35 Year
  Sex: Female

DRUGS (28)
  1. HUMIRA 40 MG/0.8 ML PEN [Suspect]
     Indication: PSORIATIC ARTHROPATHY
     Dates: start: 20100101, end: 20110101
  2. HUMIRA 40 MG/0.8 ML PEN [Suspect]
     Dates: start: 20110101, end: 201107
  3. HUMIRA 40 MG/0.8 ML PEN [Suspect]
     Dates: start: 201108, end: 201203
  4. HUMIRA 40 MG/0.8 ML PEN [Suspect]
  5. HUMIRA 40 MG/0.8 ML PEN [Suspect]
     Dates: start: 20130919
  6. WARFARIN [Concomitant]
     Indication: ANTICOAGULANT THERAPY
     Dosage: 1 MG QD
  7. PLAQUENIL [Concomitant]
     Indication: PRODUCT USED FOR UNKNOWN INDICATION
     Route: 048
  8. TUMS [Concomitant]
     Indication: PRODUCT USED FOR UNKNOWN INDICATION
     Dosage: PRN
     Dates: end: 201309
  9. ACTOS [Concomitant]
     Indication: TYPE 2 DIABETES MELLITUS
     Dosage: 45 MG DAILY
     Route: 048
  10. KLONOPIN [Concomitant]
     Indication: CONVULSION
     Dosage: 2 MG DAILY
     Route: 048
  11. KEPPRA [Concomitant]
     Indication: CONVULSION
     Dosage: 2000 MG DAILY
     Route: 048
  12. METHOTREXATE [Concomitant]
     Indication: PSORIATIC ARTHROPATHY
     Dosage: 12.5 MG WEEKLY
  13. SUBOXONE [Concomitant]
     Indication: PRODUCT USED FOR UNKNOWN INDICATION
     Dosage: 8MG/2MG
  14. MAGNESIUM GLUCONATE [Concomitant]
     Indication: PRODUCT USED FOR UNKNOWN INDICATION
     Dosage: 120 MG QD
  15. MACROBID [Concomitant]
  16. IRON [Concomitant]
  17. OYSTER SHELL CALCIUM [Concomitant]
  18. FOLIC ACID [Concomitant]
  19. SINGULAR [Concomitant]
  20. ATIVAN [Concomitant]
  21. ABILIFY [Concomitant]
     Indication: PRODUCT USED FOR UNKNOWN INDICATION
  22. VYVANSE [Concomitant]
     Indication: PRODUCT USED FOR UNKNOWN INDICATION
  23. NORTRIPTYLINE [Concomitant]
     Indication: MIGRAINE
  24. MULTIVITAMIN [Concomitant]
  25. NEURONTIN [Concomitant]
  26. COMPAZINE [Concomitant]
     Indication: NAUSEA
  27. VITAMIN D [Concomitant]
  28. PRISTIQ [Concomitant]

REACTIONS (19)
  - Gastrointestinal stromal tumour [Unknown]
  - Shoulder operation [Unknown]
  - Cellulitis [Unknown]
  - Shoulder operation [Unknown]
  - Gastric bypass [Unknown]
  - Arthralgia [Recovering/Resolving]
  - Back pain [Recovering/Resolving]
  - Pain in extremity [Recovering/Resolving]
  - Drug ineffective [Recovered/Resolved]
  - Hypoglycaemia [Unknown]
  - Feeling abnormal [Unknown]
  - Nausea [Unknown]
  - Vomiting [Unknown]
  - Hot flush [Unknown]
  - Feeling cold [Unknown]
  - Arthralgia [Unknown]
  - Pain in extremity [Unknown]
  - Haemoptysis [Not Recovered/Not Resolved]
  - Expired drug administered [Unknown]
